FAERS Safety Report 18787328 (Version 1)
Quarter: 2021Q1

REPORT INFORMATION
  Report Type: Spontaneous
  Country: US (occurrence: US)
  Receive Date: 20210125
  Receipt Date: 20210125
  Transmission Date: 20210419
  Serious: No
  Sender: FDA-Public Use
  Company Number: US-ROCHE-2646142

PATIENT
  Sex: Female

DRUGS (1)
  1. RITUXAN [Suspect]
     Active Substance: RITUXIMAB
     Indication: NON-HODGKIN^S LYMPHOMA
     Dosage: INFUSE 600 MG INTRAVENOUSLY 500 ML NS OVER 5 HOURS EVERY 3 MONTH
     Route: 041

REACTIONS (2)
  - Non-Hodgkin^s lymphoma recurrent [Unknown]
  - Drug ineffective [Unknown]
